FAERS Safety Report 7706161-0 (Version None)
Quarter: 2011Q3

REPORT INFORMATION
  Report Type: 
  Country: None (occurrence: None)
  Receive Date: 20110818
  Receipt Date: 20110809
  Transmission Date: 20111222
  Serious: Yes (Other)
  Sender: FDA-Public Use
  Company Number: AUR-APL-2011-04612

PATIENT
  Sex: Male
  Weight: 2.94 kg

DRUGS (5)
  1. RANITIDINE HYDROCHLORIDE [Suspect]
     Indication: GASTROOESOPHAGEAL REFLUX DISEASE
     Dosage: (10 ML),TRANSPLACENTAL
     Route: 064
     Dates: start: 20091208
  2. FERROUS SULFATE TAB [Concomitant]
  3. M-M-RVAXPRO (MEASLES, MUMPS AND RUBELLA VACCINE) [Suspect]
  4. AMOXICILLIN [Suspect]
     Indication: LOWER RESPIRATORY TRACT INFECTION
     Dosage: TRANSPLACENTAL
     Route: 064
     Dates: start: 20090930, end: 20091007
  5. M-M-RVAXPRO (MEASLES, MUMPS AND RUBELLA VACCINE) [Suspect]
     Indication: IMMUNISATION
     Dosage: TRANSPLACENTAL
     Route: 064
     Dates: start: 20090515, end: 20090515

REACTIONS (3)
  - MATERNAL DRUGS AFFECTING FOETUS [None]
  - FAILURE TO THRIVE [None]
  - CAESAREAN SECTION [None]
